FAERS Safety Report 9055153 (Version 3)
Quarter: 2013Q1

REPORT INFORMATION
  Report Type: Spontaneous
  Country: JP (occurrence: JP)
  Receive Date: 20130206
  Receipt Date: 20130219
  Transmission Date: 20140127
  Serious: Yes (Other)
  Sender: FDA-Public Use
  Company Number: JP-JNJFOC-20130116600

PATIENT
  Age: 79 Year
  Sex: Male

DRUGS (3)
  1. REMICADE [Suspect]
     Indication: RHEUMATOID VASCULITIS
     Route: 042
  2. RHEUMATREX [Suspect]
     Indication: RHEUMATOID VASCULITIS
     Route: 048
  3. PREDNISOLONE [Suspect]
     Indication: RHEUMATOID VASCULITIS
     Route: 065

REACTIONS (4)
  - Urinary retention [Unknown]
  - Infective spondylitis [Not Recovered/Not Resolved]
  - Extradural abscess [Not Recovered/Not Resolved]
  - Staphylococcal infection [Not Recovered/Not Resolved]
